FAERS Safety Report 4948496-0 (Version None)
Quarter: 2006Q1

REPORT INFORMATION
  Report Type: 
  Country: None (occurrence: None)
  Receive Date: 20060320
  Receipt Date: 20060310
  Transmission Date: 20060701
  Serious: Yes (Hospitalization)
  Sender: FDA-Public Use
  Company Number: US-MERCK-0603USA02118

PATIENT
  Age: 33 Year
  Sex: Male
  Weight: 148 kg

DRUGS (4)
  1. VIOXX [Suspect]
     Indication: BACK PAIN
     Route: 048
     Dates: start: 20040801, end: 20041001
  2. TYLENOL (CAPLET) [Concomitant]
     Route: 065
  3. IBUPROFEN [Concomitant]
     Route: 065
  4. BEXTRA [Concomitant]
     Route: 065

REACTIONS (11)
  - ARRHYTHMIA [None]
  - BACK PAIN [None]
  - BRADYCARDIA [None]
  - CARDIAC DISORDER [None]
  - CARDIAC FAILURE [None]
  - DEPRESSION [None]
  - DIZZINESS [None]
  - INTERVERTEBRAL DISC DEGENERATION [None]
  - POST-TRAUMATIC STRESS DISORDER [None]
  - SICK SINUS SYNDROME [None]
  - SLEEP APNOEA SYNDROME [None]
